FAERS Safety Report 22180263 (Version 1)
Quarter: 2023Q2

REPORT INFORMATION
  Report Type: Spontaneous
  Country: US (occurrence: US)
  Receive Date: 20230406
  Receipt Date: 20230406
  Transmission Date: 20230722
  Serious: Yes (Other)
  Sender: FDA-Public Use
  Company Number: US-PFIZER INC-PV202300024926

PATIENT
  Age: 73 Year
  Sex: Female
  Weight: 82.993 kg

DRUGS (5)
  1. IBRANCE [Suspect]
     Active Substance: PALBOCICLIB
     Dosage: 125 MG, CYCLIC (DAILY FOR 21 DAYS, 7 DAYS OFF)
     Dates: start: 202108, end: 20221206
  2. FASLODEX [Concomitant]
     Active Substance: FULVESTRANT
     Dosage: UNK
     Dates: start: 202111
  3. HYDROCHLOROTHIAZIDE [Concomitant]
     Active Substance: HYDROCHLOROTHIAZIDE
     Dosage: UNK
     Dates: start: 201903
  4. LISINOPRIL [Concomitant]
     Active Substance: LISINOPRIL
     Dosage: UNK
     Dates: start: 201903
  5. MONTELUKAST [Concomitant]
     Active Substance: MONTELUKAST SODIUM
     Dosage: UNK
     Dates: start: 201903

REACTIONS (6)
  - Pneumonitis [Not Recovered/Not Resolved]
  - Dyspnoea [Recovered/Resolved]
  - White blood cell count decreased [Recovering/Resolving]
  - Stomatitis [Recovered/Resolved]
  - Nausea [Recovered/Resolved]
  - Tongue disorder [Unknown]

NARRATIVE: CASE EVENT DATE: 20221106
